FAERS Safety Report 6149704-3 (Version None)
Quarter: 2009Q2

REPORT INFORMATION
  Report Type: 
  Country: None (occurrence: None)
  Receive Date: 20090409
  Receipt Date: 20090331
  Transmission Date: 20091009
  Serious: Yes (Other)
  Sender: FDA-Public Use
  Company Number: IE-B.I. PHARMACEUTICALS,INC./RIDGEFIELD-2009-UK-00224UK

PATIENT
  Age: 68 Year
  Sex: Male

DRUGS (9)
  1. MICARDIS HCT [Suspect]
     Indication: HYPERTENSION
     Dosage: 80/12.5
     Route: 048
     Dates: start: 20080101
  2. DIFENE [Suspect]
  3. PANTOPRAZOLE SODIUM [Concomitant]
     Indication: DYSPEPSIA
     Dosage: 40MG
     Route: 048
  4. DETRUSITOR [Concomitant]
     Indication: BLADDER DISORDER
     Dosage: 2MG
     Route: 048
  5. LIORESAL [Concomitant]
     Indication: MUSCLE SPASMS
     Dosage: 20MG
     Route: 048
  6. ELTROXIN [Concomitant]
     Indication: THYROID DISORDER
     Dosage: 150 (UNIT UNSPECIFIED)
  7. LIPITOR [Concomitant]
     Indication: BLOOD CHOLESTEROL
     Dosage: 40MG
     Route: 048
  8. CARDURAL [Concomitant]
     Indication: BLOOD PRESSURE
     Dosage: 4MG
     Route: 048
  9. BETAFERON [Concomitant]
     Indication: MULTIPLE SCLEROSIS
     Dosage: 250 MG ALTERNATE DAYS
     Route: 030

REACTIONS (2)
  - BLOOD PRESSURE INCREASED [None]
  - DRUG INEFFECTIVE [None]
